FAERS Safety Report 5293115-X (Version None)
Quarter: 2007Q2

REPORT INFORMATION
  Report Type: 
  Country: None (occurrence: None)
  Receive Date: 20070411
  Receipt Date: 20070322
  Transmission Date: 20071010
  Serious: Yes (Other)
  Sender: FDA-Public Use
  Company Number: DE-BAYER-200711874GDS

PATIENT
  Age: 74 Year
  Sex: Male
  Weight: 60 kg

DRUGS (2)
  1. ACTIMAX [Suspect]
     Indication: BRONCHITIS
     Dosage: TOTAL DAILY DOSE: 400 MG  UNIT DOSE: 400 MG
     Route: 048
     Dates: start: 20070124, end: 20070124
  2. ANTIBIOTIC (UNSPECIFIED) [Concomitant]
     Indication: BRONCHITIS
     Route: 065

REACTIONS (3)
  - CARDIOVASCULAR DISORDER [None]
  - NAUSEA [None]
  - TREMOR [None]
